FAERS Safety Report 5076152-X (Version None)
Quarter: 2006Q3

REPORT INFORMATION
  Report Type: 
  Country: None (occurrence: None)
  Receive Date: 20060725
  Receipt Date: 20060413
  Transmission Date: 20061208
  Serious: No
  Sender: FDA-Public Use
  Company Number: 200610793BWH

PATIENT
  Age: 50 Year
  Sex: Female
  Weight: 74.8435 kg

DRUGS (9)
  1. NEXAVAR [Suspect]
     Indication: METASTATIC RENAL CELL CARCINOMA
     Dosage: 400 MG, BID, ORAL
     Route: 048
     Dates: start: 20060209
  2. FUROSEMIDE [Concomitant]
  3. PROCHLORPERAZINE [Concomitant]
  4. LEVOFLOXACIN [Concomitant]
  5. MORPHINE SULFATE PROLONGED [Concomitant]
  6. HYDROCODONE BITARTRATE [Concomitant]
  7. MORPHINE SULFATE [Concomitant]
  8. TEMAZEPAM [Concomitant]
  9. DOCUSATE SODIUM [Concomitant]

REACTIONS (1)
  - VISION BLURRED [None]
